FAERS Safety Report 9954952 (Version 1)
Quarter: 2014Q1

REPORT INFORMATION
  Report Type: Report from Study
  Country: US (occurrence: US)
  Receive Date: 20140304
  Receipt Date: 20140304
  Transmission Date: 20141002
  Serious: No
  Sender: FDA-Public Use
  Company Number: US-ABBVIE-13P-163-1079794-00

PATIENT
  Age: 27 Year
  Sex: Male

DRUGS (2)
  1. HUMIRA [Suspect]
     Indication: PSORIASIS
     Dates: start: 201205
  2. ASA [Concomitant]
     Indication: HEADACHE
     Dosage: 1-2 TABLETS AS NEEDED - APPROX ONCE A MONTH

REACTIONS (8)
  - Injection site haemorrhage [Recovered/Resolved]
  - Sinusitis [Recovered/Resolved]
  - Nasal septum deviation [Unknown]
  - Nasal congestion [Unknown]
  - Rhinorrhoea [Unknown]
  - Localised infection [Recovered/Resolved]
  - Device malfunction [Unknown]
  - Psoriasis [Unknown]
